FAERS Safety Report 4898118-2 (Version None)
Quarter: 2006Q1

REPORT INFORMATION
  Report Type: 
  Country: None (occurrence: None)
  Receive Date: 20060127
  Receipt Date: 20060118
  Transmission Date: 20060701
  Serious: Yes (Death, Hospitalization)
  Sender: FDA-Public Use
  Company Number: 2005-12-1330

PATIENT
  Age: 39 Year
  Sex: Female
  Weight: 88.905 kg

DRUGS (2)
  1. TEMODAR [Suspect]
     Indication: METASTATIC MALIGNANT MELANOMA
     Dosage: 140 MG QD ORAL
     Route: 048
     Dates: end: 20051209
  2. THALIDOMIDE CAPSULES [Suspect]
     Indication: METASTATIC MALIGNANT MELANOMA
     Dosage: 200 MG QD ORAL
     Route: 048

REACTIONS (6)
  - DEEP VEIN THROMBOSIS [None]
  - DISEASE PROGRESSION [None]
  - MALIGNANT NEOPLASM PROGRESSION [None]
  - PNEUMONIA STAPHYLOCOCCAL [None]
  - PULMONARY EMBOLISM [None]
  - SEPSIS [None]
